FAERS Safety Report 5166451-5 (Version None)
Quarter: 2006Q4

REPORT INFORMATION
  Report Type: 
  Country: None (occurrence: None)
  Receive Date: 20061204
  Receipt Date: 20061204
  Transmission Date: 20070319
  Serious: Yes (Death)
  Sender: FDA-Public Use
  Company Number: None

PATIENT
  Age: 83 Year
  Sex: Female
  Weight: 46.7205 kg

DRUGS (1)
  1. TARCEVA [Suspect]
     Indication: PANCREATIC CARCINOMA
     Dosage: 150 MG  DAILY   PO
     Route: 048
     Dates: start: 20060915, end: 20061012

REACTIONS (7)
  - DISCOMFORT [None]
  - EPISTAXIS [None]
  - INCORRECT DRUG DOSAGE FORM ADMINISTERED [None]
  - MEDICATION ERROR [None]
  - MOUTH HAEMORRHAGE [None]
  - OVERDOSE [None]
  - VERTIGO [None]
